FAERS Safety Report 18631915 (Version 2)
Quarter: 2021Q1

REPORT INFORMATION
  Report Type: Report from Study
  Country: None (occurrence: US)
  Receive Date: 20201218
  Receipt Date: 20210103
  Transmission Date: 20210419
  Serious: Yes (Hospitalization, Other)
  Sender: FDA-Public Use
  Company Number: US-ABBVIE-20K-163-3578384-00

PATIENT
  Sex: Male
  Weight: 82.63 kg

DRUGS (2)
  1. VITAMIN B12 [Concomitant]
     Active Substance: CYANOCOBALAMIN
     Indication: GASTROINTESTINAL DISORDER
  2. HUMIRA [Suspect]
     Active Substance: ADALIMUMAB
     Indication: CROHN^S DISEASE
     Dosage: CITRATE FREE, STARTED HUMIRA IN 2015 OR 2016
     Route: 058
     Dates: start: 2015

REACTIONS (6)
  - Sepsis [Unknown]
  - Blood cholesterol increased [Recovered/Resolved]
  - Insomnia [Unknown]
  - Crohn^s disease [Recovered/Resolved]
  - Appendicectomy [Unknown]
  - Type 2 diabetes mellitus [Recovered/Resolved]

NARRATIVE: CASE EVENT DATE: 2015
